FAERS Safety Report 11779406 (Version 1)
Quarter: 2015Q4

REPORT INFORMATION
  Report Type: Spontaneous
  Country: US (occurrence: US)
  Receive Date: 20151125
  Receipt Date: 20151125
  Transmission Date: 20160304
  Serious: Yes (Other)
  Sender: FDA-Public Use
  Company Number: US-ABBVIE-15P-163-1503118-00

PATIENT
  Sex: Male
  Weight: 91.25 kg

DRUGS (9)
  1. CATAPRES [Concomitant]
     Active Substance: CLONIDINE HYDROCHLORIDE
     Indication: HYPERTENSION
     Dosage: STARTED A COUPLE WEEKS AGO
     Dates: start: 201511
  2. AMLODIPINE [Suspect]
     Active Substance: AMLODIPINE BESYLATE
     Indication: HYPERTENSION
     Route: 065
  3. LEVAQUIN [Concomitant]
     Active Substance: LEVOFLOXACIN
     Indication: INFECTION
     Dosage: WILL BE TAKING FOR APPROX 6-8 WEEKS
     Route: 048
     Dates: start: 20151105
  4. ZOLPIDEM [Concomitant]
     Active Substance: ZOLPIDEM\ZOLPIDEM TARTRATE
     Indication: INSOMNIA
     Dosage: AT NIGHT, ROTATES THIS WITH CLONAZEPAM
  5. SYNTHROID [Suspect]
     Active Substance: LEVOTHYROXINE SODIUM
     Indication: THYROID DISORDER
     Route: 065
     Dates: start: 201508
  6. WARFARIN [Concomitant]
     Active Substance: WARFARIN
     Indication: ATRIAL FIBRILLATION
     Dosage: 7.5MG AND 5MG ALTERNATING DAYS; AT NIGHT
  7. ZYVOX [Suspect]
     Active Substance: LINEZOLID
     Indication: OSTEOMYELITIS
     Route: 065
  8. CLONAZEPAM. [Concomitant]
     Active Substance: CLONAZEPAM
     Indication: INSOMNIA
     Dosage: AT NIGHT ROTATES THIS WITH ZOLPIDEM
  9. SILDENAFIL. [Concomitant]
     Active Substance: SILDENAFIL
     Indication: SEXUAL DYSFUNCTION
     Dosage: STARTED 5-6 YEARS AGO; BREAKS PILL IN HALF; TAKES 150MG

REACTIONS (3)
  - Blood pressure fluctuation [Unknown]
  - Night sweats [Recovered/Resolved]
  - Osteomyelitis [Unknown]
